FAERS Safety Report 5517700-2 (Version None)
Quarter: 2007Q4

REPORT INFORMATION
  Report Type: 
  Country: None (occurrence: None)
  Receive Date: 20071114
  Receipt Date: 20071008
  Transmission Date: 20080405
  Serious: Yes (Hospitalization)
  Sender: FDA-Public Use
  Company Number: IL-GENENTECH-249908

PATIENT
  Age: 71 Year
  Sex: Male

DRUGS (4)
  1. AVASTIN [Suspect]
     Indication: COLON CANCER
     Dosage: UNK, UNK
     Dates: start: 20070123, end: 20070822
  2. FLUOROURACIL [Concomitant]
     Indication: COLON CANCER
     Dates: start: 20070123
  3. FOLINIC ACID [Concomitant]
     Indication: COLON CANCER
     Dates: start: 20070123
  4. IRINOTECAN HCL [Concomitant]
     Indication: COLON CANCER
     Dates: start: 20070123

REACTIONS (5)
  - PNEUMONIA [None]
  - PULMONARY CAVITATION [None]
  - PULMONARY EMBOLISM [None]
  - PULMONARY INFARCTION [None]
  - PYREXIA [None]
